FAERS Safety Report 4653870-6 (Version None)
Quarter: 2005Q2

REPORT INFORMATION
  Report Type: 
  Country: None (occurrence: None)
  Receive Date: 20050408
  Receipt Date: 20050111
  Transmission Date: 20051028
  Serious: No
  Sender: FDA-Public Use
  Company Number: 230137K05USA

PATIENT
  Age: 61 Year
  Sex: Female

DRUGS (2)
  1. REBIF [Suspect]
     Indication: MULTIPLE SCLEROSIS
     Dosage: 22 MCG, 34 IN 1 WEEKS, SUBCUTANEOUS
     Route: 058
     Dates: start: 20041228
  2. CELEXA [Concomitant]

REACTIONS (4)
  - DEPRESSION [None]
  - FEELING HOT [None]
  - MUSCLE SPASMS [None]
  - MUSCLE TIGHTNESS [None]
